FAERS Safety Report 5427177-3 (Version None)
Quarter: 2007Q3

REPORT INFORMATION
  Report Type: 
  Country: None (occurrence: None)
  Receive Date: 20070828
  Receipt Date: 20070816
  Transmission Date: 20080115
  Serious: Yes (Other)
  Sender: FDA-Public Use
  Company Number: US-ELI_LILLY_AND_COMPANY-US200708004319

PATIENT

DRUGS (4)
  1. OLANZAPINE [Suspect]
     Dosage: 1.25 MG, DAILY (1/D)
     Route: 064
  2. PAROXETINE HYDROCHLORIDE [Concomitant]
     Dosage: 37.5 MG, DAILY (1/D)
     Route: 064
  3. CLONAZEPAM [Concomitant]
     Dosage: 1 MG, DAILY (1/D)
     Route: 064
  4. CLONAZEPAM [Concomitant]
     Dosage: 2 MG, DAILY (1/D)
     Route: 064

REACTIONS (5)
  - DRUG EXPOSURE DURING PREGNANCY [None]
  - DRUG SCREEN FALSE POSITIVE [None]
  - DRUG WITHDRAWAL SYNDROME NEONATAL [None]
  - MECONIUM STAIN [None]
  - NEONATAL RESPIRATORY FAILURE [None]
